FAERS Safety Report 10248242 (Version 2)
Quarter: 2014Q2

REPORT INFORMATION
  Report Type: Other
  Country: GB (occurrence: GB)
  Receive Date: 20140620
  Receipt Date: 20140620
  Transmission Date: 20141212
  Serious: Yes (Life-Threatening)
  Sender: FDA-Public Use
  Company Number: GB-LUPIN PHARMACEUTICALS INC.-E2B_00000757

PATIENT
  Age: 51 Year
  Sex: Female
  Weight: 88 kg

DRUGS (7)
  1. SIMVASTATIN [Suspect]
     Indication: HYPERCHOLESTEROLAEMIA
     Route: 048
     Dates: start: 20130318, end: 20130322
  2. ATENOLOL [Concomitant]
     Indication: PALPITATIONS
     Route: 048
  3. FLUOXETINE [Concomitant]
     Indication: AFFECTIVE DISORDER
     Route: 048
  4. FUROSEMIDE [Concomitant]
     Indication: OEDEMA
     Route: 048
  5. OMEPRAZOLE [Concomitant]
     Indication: PRODUCT USED FOR UNKNOWN INDICATION
     Route: 048
     Dates: end: 20130322
  6. OMEPRAZOLE [Concomitant]
     Route: 048
     Dates: start: 20130323
  7. CALCIUM CARBONATE [Concomitant]
     Indication: PRODUCT USED FOR UNKNOWN INDICATION
     Route: 048
     Dates: start: 20130322

REACTIONS (1)
  - Anaphylactic reaction [Recovered/Resolved]
